FAERS Safety Report 9827384 (Version 1)
Quarter: 2014Q1

REPORT INFORMATION
  Report Type: Report from Study
  Country: CA (occurrence: CA)
  Receive Date: 20140117
  Receipt Date: 20140117
  Transmission Date: 20141002
  Serious: Yes (Disabling)
  Sender: FDA-Public Use
  Company Number: CA-TEVA-456880USA

PATIENT
  Sex: Male

DRUGS (1)
  1. BENDAMUSTINE [Suspect]
     Indication: NON-HODGKIN^S LYMPHOMA
     Route: 042
     Dates: start: 20130110, end: 20130614

REACTIONS (1)
  - Visual acuity reduced [Not Recovered/Not Resolved]
